FAERS Safety Report 21561147 (Version 2)
Quarter: 2022Q4

REPORT INFORMATION
  Report Type: Spontaneous
  Country: JP (occurrence: JP)
  Receive Date: 20221107
  Receipt Date: 20221229
  Transmission Date: 20230113
  Serious: Yes (Hospitalization, Other)
  Sender: FDA-Public Use
  Company Number: JP-UCBSA-2022062770

PATIENT

DRUGS (1)
  1. LEVETIRACETAM [Suspect]
     Active Substance: LEVETIRACETAM
     Indication: Epilepsy
     Dosage: HIGH DOSE, 2X/DAY (BID)
     Route: 048

REACTIONS (7)
  - Seizure [Unknown]
  - Partial seizures [Unknown]
  - Temporal lobe epilepsy [Unknown]
  - Paradoxical drug reaction [Unknown]
  - Drug resistance [Unknown]
  - Status epilepticus [Unknown]
  - Underdose [Unknown]
